FAERS Safety Report 25935897 (Version 2)
Quarter: 2025Q4

REPORT INFORMATION
  Report Type: Report from Study
  Country: US (occurrence: US)
  Receive Date: 20251017
  Receipt Date: 20251123
  Transmission Date: 20260117
  Serious: Yes (Hospitalization, Other)
  Sender: ABBVIE
  Company Number: US-ABBVIE-6504054

PATIENT
  Age: 66 Year
  Sex: Female

DRUGS (2)
  1. RINVOQ [Suspect]
     Active Substance: UPADACITINIB
     Indication: Dermatitis atopic
     Route: 048
     Dates: start: 20250407, end: 202508
  2. RINVOQ [Suspect]
     Active Substance: UPADACITINIB
     Indication: Dermatitis atopic
     Route: 048
     Dates: start: 2024

REACTIONS (4)
  - Ulcer haemorrhage [Recovered/Resolved]
  - Pain [Not Recovered/Not Resolved]
  - Abdominal pain [Recovered/Resolved]
  - Pulmonary thrombosis [Unknown]

NARRATIVE: CASE EVENT DATE: 20250101
